FAERS Safety Report 8469698-5 (Version None)
Quarter: 2012Q2

REPORT INFORMATION
  Report Type: 
  Country: None (occurrence: None)
  Receive Date: 20120626
  Receipt Date: 20120620
  Transmission Date: 20120825
  Serious: Yes (Other)
  Sender: FDA-Public Use
  Company Number: JP-BAYER-2012-059135

PATIENT
  Age: 86 Year
  Sex: Female

DRUGS (2)
  1. CLOPIDOGREL BISULFATE [Suspect]
     Route: 048
  2. ASPIRIN [Suspect]
     Indication: CEREBRAL INFARCTION
     Route: 048

REACTIONS (4)
  - SUBCUTANEOUS HAEMATOMA [None]
  - LARYNGEAL HAEMORRHAGE [None]
  - ACQUIRED HAEMOPHILIA [None]
  - ANAEMIA [None]
